FAERS Safety Report 8492225-3 (Version None)
Quarter: 2012Q3

REPORT INFORMATION
  Report Type: 
  Country: None (occurrence: None)
  Receive Date: 20120706
  Receipt Date: 20120627
  Transmission Date: 20120928
  Serious: Yes (Other)
  Sender: FDA-Public Use
  Company Number: JP-GILEAD-2012-0056921

PATIENT
  Age: 29 Year
  Sex: Female

DRUGS (3)
  1. REVATIO [Concomitant]
     Route: 048
  2. CARELOAD [Concomitant]
     Route: 048
  3. AMBRISENTAN [Suspect]
     Indication: PULMONARY ARTERIAL HYPERTENSION
     Dosage: 5 MG, UNK
     Route: 048
     Dates: start: 20110401

REACTIONS (1)
  - MATERNAL EXPOSURE DURING PREGNANCY [None]
